FAERS Safety Report 11264398 (Version 1)
Quarter: 2015Q3

REPORT INFORMATION
  Report Type: Spontaneous
  Country: QA (occurrence: None)
  Receive Date: 20150709
  Receipt Date: 20150709
  Transmission Date: 20151125
  Serious: Yes (Hospitalization, Other)
  Sender: FDA-Public Use
  Company Number: KAD201507-002098

PATIENT
  Age: 29 Year
  Sex: Female

DRUGS (9)
  1. ERYTHROBIOTEN [Concomitant]
  2. AMIODARONE (AMIODARONE HYDROCHLORIDE) [Concomitant]
  3. IRON [Concomitant]
     Active Substance: IRON
  4. PREDNISOLONE. [Concomitant]
     Active Substance: PREDNISOLONE
  5. MYCOPHENOLATE MOFETIL. [Concomitant]
     Active Substance: MYCOPHENOLATE MOFETIL
  6. RIBAVIRIN. [Suspect]
     Active Substance: RIBAVIRIN
     Indication: HEPATITIS C
     Dates: start: 20150527
  7. CLONIDINE. [Concomitant]
     Active Substance: CLONIDINE
  8. VIEKIRAX (OMBITASVIR, PARITAPREVIR, RITONAVIR) [Suspect]
     Active Substance: OMBITASVIR\PARITAPREVIR\RITONAVIR
     Indication: HEPATITIS C
     Dosage: 1 TABLET (TWICE A DAY)
     Dates: start: 20150527
  9. EXVIERA (DASABUVIR) [Suspect]
     Active Substance: DASABUVIR
     Indication: HEPATITIS C
     Dosage: 2 TABLETS, ONE IN ONE DAY, ORAL
     Route: 048
     Dates: start: 20150527

REACTIONS (2)
  - Pancreatitis acute [None]
  - Blood test abnormal [None]
